FAERS Safety Report 20776662 (Version 1)
Quarter: 2022Q2

REPORT INFORMATION
  Report Type: Spontaneous
  Country: US (occurrence: US)
  Receive Date: 20220502
  Receipt Date: 20220502
  Transmission Date: 20220720
  Serious: No
  Sender: FDA-Public Use
  Company Number: US-SA-SAC20220428000169

PATIENT
  Age: 13 Year
  Sex: Male

DRUGS (2)
  1. DUPIXENT [Suspect]
     Active Substance: DUPILUMAB
     Indication: Asthma
     Dosage: THERAPY START DATE: 04-JUN-2019 TO CURRENT
     Route: 058
     Dates: start: 20190604
  2. DUPIXENT [Suspect]
     Active Substance: DUPILUMAB
     Indication: Dermatitis atopic

REACTIONS (3)
  - Decreased appetite [Not Recovered/Not Resolved]
  - Insomnia [Unknown]
  - Product use issue [Unknown]

NARRATIVE: CASE EVENT DATE: 20190604
